FAERS Safety Report 9543130 (Version 1)
Quarter: 2013Q2

REPORT INFORMATION
  Report Type: Spontaneous
  Country: US (occurrence: None)
  Receive Date: 20130524
  Receipt Date: 20130524
  Transmission Date: 20140414
  Serious: Yes (Other)
  Sender: FDA-Public Use
  Company Number: PHEH2013US000681

PATIENT
  Age: 26 Year
  Sex: Female

DRUGS (13)
  1. GILENYA (FINGOLIMOD) CAPSULE, 0.5MG [Suspect]
     Indication: RELAPSING-REMITTING MULTIPLE SCLEROSIS
     Route: 048
     Dates: start: 20121030
  2. ABILIFY (ARIPIPRAZOLE) [Concomitant]
  3. ADDERALL (AMFETAMINE ASPARTATE, AMFETAMINE SULFATE, DEXAMFETAMINE SACCHARATE, DEXAMFETAMINE SULFATE) [Concomitant]
  4. IBUPROFEN [Concomitant]
  5. MELATONIN [Concomitant]
  6. OXYCODONE [Concomitant]
  7. PHENERGAN (CEPHAELIS SPP.FLUID EXTRACT, CHLOROFORM, CITRIC ACID, DEXTROMETHORPHAN HYDROBROMIDE, PROMETHAZINE HYDROCHLORIDE, SODIUM CITRATE, SULFOGAIACOL) [Concomitant]
  8. PHENTERMINE [Concomitant]
  9. SEASONIQUE (ETHINYLESTRADIOL, LEVONORGESTREL) [Concomitant]
  10. SOMA (CARISOPRODOL) [Concomitant]
  11. STRESS FORMULA VITAMINS (ASCORBIC ACID, BIOTIN, CALCIUM PHANTOTHENATE, CYANOCOBALAMIN, FOLIC ACID, NICOTINAMIDE, PYRIDOXINE HYDROCHLORIDE, RIBOFLAVIN, THIAMINE HYDROCHLORIDE, TOCOPHERY ACETATE) [Concomitant]
  12. VALIUM (DIAZEPAM) [Concomitant]
  13. VITAMIN D (ERGOCALCIFEROL) [Concomitant]

REACTIONS (4)
  - Respiratory tract infection [None]
  - Nausea [None]
  - Pain [None]
  - Asthenia [None]
